FAERS Safety Report 4320518-X (Version None)
Quarter: 2004Q1

REPORT INFORMATION
  Report Type: 
  Country: None (occurrence: None)
  Receive Date: 20040322
  Receipt Date: 20031211
  Transmission Date: 20041129
  Serious: Yes (Death, Life-Threatening, Hospitalization)
  Sender: FDA-Public Use
  Company Number: 200313226DE

PATIENT
  Age: 80 Year
  Sex: Female
  Weight: 53 kg

DRUGS (6)
  1. AMARYL [Suspect]
     Indication: BLOOD GLUCOSE INCREASED
     Route: 048
     Dates: start: 20030922, end: 20030930
  2. UNACID PD ORAL [Suspect]
     Indication: URINARY TRACT INFECTION
     Dosage: DOSE: 1-0-1
     Route: 048
     Dates: start: 20030926, end: 20030930
  3. PANTOPRAZOL [Suspect]
     Route: 048
     Dates: start: 20030920, end: 20031012
  4. METOPROLOL [Concomitant]
     Indication: HYPERTENSION
     Route: 048
     Dates: end: 20031012
  5. HEPARIN [Concomitant]
     Dosage: DOSE UNIT: UNITS
     Dates: start: 20030918, end: 20030930
  6. CORTISONE ACETATE [Concomitant]

REACTIONS (11)
  - CEREBRAL HAEMORRHAGE [None]
  - DISEASE PROGRESSION [None]
  - GENERAL PHYSICAL HEALTH DETERIORATION [None]
  - HAEMOGLOBIN DECREASED [None]
  - HAEMORRHAGE [None]
  - MARKEDLY REDUCED DIETARY INTAKE [None]
  - OEDEMA PERIPHERAL [None]
  - PETECHIAE [None]
  - THROMBOCYTOPENIA [None]
  - URINARY TRACT INFECTION [None]
  - WHITE BLOOD CELL COUNT INCREASED [None]
